FAERS Safety Report 12299748 (Version 1)
Quarter: 2016Q2

REPORT INFORMATION
  Report Type: Report from Study
  Country: IT (occurrence: IT)
  Receive Date: 20160425
  Receipt Date: 20160425
  Transmission Date: 20160815
  Serious: Yes (Death, Hospitalization, Disabling, Other)
  Sender: FDA-Public Use
  Company Number: PHHO2015IT010592

PATIENT
  Age: 47 Year
  Sex: Male
  Weight: 47 kg

DRUGS (7)
  1. EVEROLIMUS [Suspect]
     Active Substance: EVEROLIMUS
     Indication: LIVER TRANSPLANT
     Dosage: 0.75 MG, BID
     Route: 048
     Dates: start: 20141124
  2. ACICLIN [Concomitant]
     Active Substance: ACYCLOVIR
     Indication: ANTIVIRAL PROPHYLAXIS
     Dosage: 400 MG, BID
     Route: 048
     Dates: start: 20141029
  3. EVEROLIMUS [Suspect]
     Active Substance: EVEROLIMUS
     Dosage: UNK
     Route: 048
  4. BACTRIM [Concomitant]
     Active Substance: SULFAMETHOXAZOLE\TRIMETHOPRIM
     Indication: PROPHYLAXIS
     Dosage: 160 MG, QW3 (T/W)
     Route: 048
     Dates: start: 20141029
  5. DEURSIL [Concomitant]
     Active Substance: URSODIOL
     Indication: BILIARY TRACT DISORDER
     Dosage: 300 MG, TID
     Route: 048
     Dates: start: 20141030
  6. ENTECAVIR. [Concomitant]
     Active Substance: ENTECAVIR
     Indication: PROPHYLAXIS
     Dosage: 0.5 MG, ONCE/SINGLE
     Route: 048
     Dates: start: 20141029
  7. PROGRAF [Suspect]
     Active Substance: TACROLIMUS\TACROLIMUS ANHYDROUS
     Indication: LIVER TRANSPLANT
     Dosage: UNK
     Route: 048
     Dates: start: 20041124, end: 20150325

REACTIONS (3)
  - Hepatocellular carcinoma [Fatal]
  - Metastases to bone [Fatal]
  - Metastases to lung [Fatal]

NARRATIVE: CASE EVENT DATE: 20150610
